FAERS Safety Report 14225371 (Version 1)
Quarter: 2017Q4

REPORT INFORMATION
  Report Type: Spontaneous
  Country: US (occurrence: US)
  Receive Date: 20171127
  Receipt Date: 20171127
  Transmission Date: 20180321
  Serious: No
  Sender: FDA-Public Use
  Company Number: US-PFIZER INC-2017507049

PATIENT
  Age: 20 Year
  Sex: Male
  Weight: 106 kg

DRUGS (1)
  1. CELEBREX [Suspect]
     Active Substance: CELECOXIB
     Indication: INTERVERTEBRAL DISC DISORDER
     Dosage: UNK
     Dates: start: 20171117, end: 201711

REACTIONS (2)
  - Rash pruritic [Unknown]
  - Product use in unapproved indication [Unknown]
